FAERS Safety Report 15858787 (Version 1)
Quarter: 2019Q1

REPORT INFORMATION
  Report Type: Spontaneous
  Country: US (occurrence: US)
  Receive Date: 20190123
  Receipt Date: 20190123
  Transmission Date: 20190417
  Serious: Yes (Death)
  Sender: FDA-Public Use
  Company Number: US-COVIS PHARMA B.V.-2019COV00028

PATIENT
  Age: 52 Year
  Sex: Female

DRUGS (8)
  1. TIZANIDINE. [Suspect]
     Active Substance: TIZANIDINE
     Route: 048
  2. MORPHINE [Suspect]
     Active Substance: MORPHINE
     Route: 048
  3. AMPHETAMINE [Suspect]
     Active Substance: AMPHETAMINE
     Route: 048
  4. ACETAMINOPHEN/OXYCODONE [Suspect]
     Active Substance: ACETAMINOPHEN\OXYCODONE HYDROCHLORIDE
     Route: 048
  5. BENZODIAZEPINE [Suspect]
     Active Substance: BENZODIAZEPINE
     Route: 048
  6. TRAMADOL. [Suspect]
     Active Substance: TRAMADOL
     Route: 048
  7. OXYCODONE [Suspect]
     Active Substance: OXYCODONE
     Route: 048
  8. QUETIAPINE. [Suspect]
     Active Substance: QUETIAPINE
     Route: 048

REACTIONS (2)
  - Toxicity to various agents [Fatal]
  - Completed suicide [Fatal]
